FAERS Safety Report 5950718-4 (Version None)
Quarter: 2008Q4

REPORT INFORMATION
  Report Type: 
  Country: None (occurrence: None)
  Receive Date: 20081022
  Receipt Date: 20080814
  Transmission Date: 20090506
  Serious: No
  Sender: FDA-Public Use
  Company Number: ALL1-2008-02298

PATIENT
  Sex: Female

DRUGS (1)
  1. VYVANSE [Suspect]
     Indication: ASTHENIA
     Dosage: 70 MG, 1X/DAY:QD,ORAL
     Route: 048
     Dates: start: 20080812, end: 20080814

REACTIONS (5)
  - DRY MOUTH [None]
  - FEELING JITTERY [None]
  - INSOMNIA [None]
  - OFF LABEL USE [None]
  - THIRST [None]
